FAERS Safety Report 8486369-X (Version None)
Quarter: 2012Q3

REPORT INFORMATION
  Report Type: 
  Country: None (occurrence: None)
  Receive Date: 20120703
  Receipt Date: 20120625
  Transmission Date: 20120928
  Serious: Yes (Other)
  Sender: FDA-Public Use
  Company Number: JP-GLAXOSMITHKLINE-B0807038A

PATIENT
  Sex: Female

DRUGS (10)
  1. FLUTICASONE PROPIONATE/SALMETEROL [Suspect]
     Dosage: 500MCG PER DAY
     Route: 055
     Dates: start: 20120501, end: 20120528
  2. MAGMITT [Concomitant]
     Route: 048
  3. RABEPRAZOLE SODIUM [Concomitant]
     Indication: GASTROOESOPHAGEAL REFLUX DISEASE
     Dosage: 10MG PER DAY
     Route: 048
     Dates: start: 20111113
  4. ISALON [Concomitant]
     Route: 048
  5. FLUTICASONE PROPIONATE/SALMETEROL [Suspect]
     Indication: ASTHMA
     Dosage: 500MCG PER DAY
     Route: 055
     Dates: start: 20120322
  6. WARFARIN SODIUM [Concomitant]
     Indication: ATRIAL FIBRILLATION
     Dosage: 2.5MG PER DAY
     Route: 048
     Dates: start: 20120405
  7. SIGMART [Concomitant]
     Indication: ANGINA PECTORIS
     Dosage: 45MG PER DAY
     Route: 048
     Dates: start: 20111113
  8. METOPROLOL TARTRATE [Concomitant]
     Indication: HYPERTENSION
     Dosage: 120MG PER DAY
     Route: 048
     Dates: start: 20111113
  9. POSTERISAN [Concomitant]
     Route: 061
  10. TANATRIL [Concomitant]
     Indication: HYPERTENSION
     Dosage: 5MG PER DAY
     Route: 048
     Dates: start: 20111113

REACTIONS (1)
  - HALLUCINATION [None]
